FAERS Safety Report 22186717 (Version 1)
Quarter: 2023Q2

REPORT INFORMATION
  Report Type: Report from Study
  Country: US (occurrence: US)
  Receive Date: 20230407
  Receipt Date: 20230407
  Transmission Date: 20230722
  Serious: Yes (Other)
  Sender: FDA-Public Use
  Company Number: US-UCBSA-2023017336

PATIENT
  Sex: Male
  Weight: 1.97 kg

DRUGS (4)
  1. LACOSAMIDE [Suspect]
     Active Substance: LACOSAMIDE
     Indication: Seizure
     Dosage: 2 MILLIGRAM/KILOGRAM, ONCE DAILY (QD)
  2. LACOSAMIDE [Suspect]
     Active Substance: LACOSAMIDE
     Dosage: 6 MILLIGRAM/KILOGRAM, 2X/DAY (BID)
  3. LACOSAMIDE [Suspect]
     Active Substance: LACOSAMIDE
     Dosage: 10 MILLIGRAM/KILOGRAM, 2X/DAY (BID)
  4. LACOSAMIDE [Suspect]
     Active Substance: LACOSAMIDE
     Dosage: 10.29 MILLIGRAM/KILOGRAM

REACTIONS (3)
  - Supraventricular extrasystoles [Recovered/Resolved]
  - Extrasystoles [Recovered/Resolved]
  - Insurance issue [Unknown]
